FAERS Safety Report 7907449-0 (Version None)
Quarter: 2011Q4

REPORT INFORMATION
  Report Type: 
  Country: None (occurrence: None)
  Receive Date: 20111109
  Receipt Date: 20111028
  Transmission Date: 20120403
  Serious: Yes (Hospitalization)
  Sender: FDA-Public Use
  Company Number: 2011-4344

PATIENT
  Age: 64 Year
  Sex: Female

DRUGS (4)
  1. ANTICOAGULANT THERAPY (BLOOD AND RELATED PRODUCTS) [Concomitant]
  2. GASTRIC PROTECTION (ALL OTHER THERAPEUTIC PRODUCTS) [Concomitant]
  3. SOMATULINE DEPOT [Suspect]
     Indication: DIARRHOEA
     Dosage: 120 MG (120 MG, 1 IN 28 D), INTRAMUSCULAR
     Route: 030
     Dates: start: 20071008
  4. SOMATULINE DEPOT [Suspect]
     Indication: HEPATIC NEOPLASM MALIGNANT RESECTABLE
     Dosage: 120 MG (120 MG, 1 IN 28 D), INTRAMUSCULAR
     Route: 030
     Dates: start: 20071008

REACTIONS (2)
  - DEHYDRATION [None]
  - HYPOTENSION [None]
